FAERS Safety Report 14507903 (Version 1)
Quarter: 2018Q1

REPORT INFORMATION
  Report Type: Report from Study
  Country: IT (occurrence: IT)
  Receive Date: 20180208
  Receipt Date: 20180208
  Transmission Date: 20180509
  Serious: Yes (Other)
  Sender: FDA-Public Use
  Company Number: IT-AMGEN-ITANI2017109180

PATIENT
  Age: 57 Year
  Sex: Female

DRUGS (17)
  1. CARFILZOMIB [Suspect]
     Active Substance: CARFILZOMIB
     Indication: PLASMA CELL MYELOMA
     Dosage: 20 MG/M2, UNK (43 MG TOTAL ON DAYS 1, 2; 8, 9; 15, 16) 1ST CYCLE
     Route: 065
     Dates: start: 20160113, end: 20160128
  2. CARFILZOMIB [Suspect]
     Active Substance: CARFILZOMIB
     Dosage: 20 MG/M2, UNK (43 MG TOTAL ON DAYS 1, 2; 8, 9; 15, 16) 5TH CYCLE
     Route: 065
     Dates: start: 20160511, end: 20160526
  3. CARFILZOMIB [Suspect]
     Active Substance: CARFILZOMIB
     Dosage: 20 MG/M2, UNK (43 MG TOTAL ON DAYS 1, 2; 8, 9; 15, 16) 16TH CYCLE
     Route: 065
     Dates: start: 20170412, end: 20170428
  4. CARFILZOMIB [Suspect]
     Active Substance: CARFILZOMIB
     Dosage: 20 MG/M2, UNK (43 MG TOTAL ON DAYS 1, 2; 8, 9; 15, 16) 2ND CYCLE
     Route: 065
     Dates: start: 20160210, end: 20160228
  5. CARFILZOMIB [Suspect]
     Active Substance: CARFILZOMIB
     Dosage: 20 MG/M2, UNK (43 MG TOTAL ON DAYS 1, 2; 8, 9; 15, 16) 3RD CYCLE
     Route: 065
     Dates: start: 20160309, end: 20160324
  6. CARFILZOMIB [Suspect]
     Active Substance: CARFILZOMIB
     Dosage: 20 MG/M2, UNK (43 MG TOTAL ON DAYS 1, 2; 8, 9; 15, 16) 9TH CYCLE
     Route: 065
     Dates: start: 20160906, end: 20160921
  7. CARFILZOMIB [Suspect]
     Active Substance: CARFILZOMIB
     Dosage: 35 MG/M2, UNK (56MG TOTAL ON DAYS 1, 2; 8, 9; 15, 16) 13TH CYCLE
     Route: 065
     Dates: start: 20170118, end: 20170202
  8. CARFILZOMIB [Suspect]
     Active Substance: CARFILZOMIB
     Dosage: 20 MG/M2, UNK (43 MG TOTAL ON DAYS 1, 2; 8, 9; 15, 16) 8TH CYCLE
     Route: 065
     Dates: start: 20160810, end: 20160825
  9. CARFILZOMIB [Suspect]
     Active Substance: CARFILZOMIB
     Dosage: 20 MG/M2, UNK (43 MG TOTAL ON DAYS 1, 2; 8, 9; 15, 16) 14TH CYCLE
     Route: 065
     Dates: start: 20170215, end: 20170302
  10. CARFILZOMIB [Suspect]
     Active Substance: CARFILZOMIB
     Dosage: 20 MG/M2, UNK (43 MG TOTAL ON DAYS 1, 2; 8, 9; 15, 16) 6TH CYCLE
     Route: 065
     Dates: start: 20160608, end: 20160623
  11. CARFILZOMIB [Suspect]
     Active Substance: CARFILZOMIB
     Dosage: 20 MG/M2, UNK (43 MG TOTAL ON DAYS 1, 2; 8, 9; 15, 16) 10TH CYCLE
     Route: 065
     Dates: start: 20161004, end: 20161011
  12. CARFILZOMIB [Suspect]
     Active Substance: CARFILZOMIB
     Dosage: 20 MG/M2, UNK (43 MG TOTAL ON DAYS 1, 2; 8, 9; 15, 16) 11TH CYCLE
     Route: 065
     Dates: start: 20161122, end: 20161207
  13. CARFILZOMIB [Suspect]
     Active Substance: CARFILZOMIB
     Dosage: 20 MG/M2, UNK (43 MG TOTAL ON DAYS 1, 2; 8, 9; 15, 16) 12TH CYCLE
     Route: 065
     Dates: start: 20161220, end: 20170104
  14. DEXAMETHASONE. [Suspect]
     Active Substance: DEXAMETHASONE
     Indication: PLASMA CELL MYELOMA
     Dosage: UNK
     Route: 065
     Dates: start: 20160113, end: 2017
  15. CARFILZOMIB [Suspect]
     Active Substance: CARFILZOMIB
     Dosage: 20 MG/M2, UNK (43 MG TOTAL ON DAYS 1, 2; 8, 9; 15, 16) 15TH CYCLE
     Route: 065
     Dates: start: 20170315, end: 20170330
  16. CARFILZOMIB [Suspect]
     Active Substance: CARFILZOMIB
     Dosage: 20 MG/M2, UNK (43 MG TOTAL ON DAYS 1, 2; 8, 9; 15, 16) 4TH CYCLE
     Route: 065
     Dates: start: 20160405, end: 20160421
  17. CARFILZOMIB [Suspect]
     Active Substance: CARFILZOMIB
     Dosage: 20 MG/M2, UNK (43 MG TOTAL ON DAYS 1, 2; 8, 9; 15, 16) 7TH CYCLE
     Route: 065
     Dates: start: 20160713, end: 20160728

REACTIONS (3)
  - Disease progression [Unknown]
  - Sciatica [Unknown]
  - Pyrexia [Unknown]

NARRATIVE: CASE EVENT DATE: 20160901
